FAERS Safety Report 5511131-7 (Version None)
Quarter: 2007Q4

REPORT INFORMATION
  Report Type: 
  Country: None (occurrence: None)
  Receive Date: 20071109
  Receipt Date: 20071101
  Transmission Date: 20080405
  Serious: Yes (Hospitalization)
  Sender: FDA-Public Use
  Company Number: SE-AVENTIS-200720075GDDC

PATIENT
  Age: 58 Year
  Sex: Female

DRUGS (5)
  1. FLAGYL [Suspect]
     Indication: INFLAMMATION
     Route: 048
     Dates: start: 20070726, end: 20070813
  2. FLAGYL [Suspect]
     Route: 048
     Dates: start: 20070726, end: 20070813
  3. CALCIUM [Concomitant]
     Dosage: DOSE: UNK
  4. VITAMIN E [Concomitant]
     Dosage: DOSE: UNK
  5. PREDNISOLONE [Concomitant]
     Dosage: DOSE: UNK

REACTIONS (4)
  - HEPATOCELLULAR DAMAGE [None]
  - INTERNATIONAL NORMALISED RATIO INCREASED [None]
  - PROTHROMBIN LEVEL DECREASED [None]
  - TRANSAMINASES INCREASED [None]
